FAERS Safety Report 6457820-1 (Version None)
Quarter: 2009Q4

REPORT INFORMATION
  Report Type: 
  Country: None (occurrence: None)
  Receive Date: 20091125
  Receipt Date: 20091119
  Transmission Date: 20100525
  Serious: Yes (Other)
  Sender: FDA-Public Use
  Company Number: ES-WYE-G04925209

PATIENT
  Age: 58 Year
  Sex: Male

DRUGS (6)
  1. TAZOCEL [Suspect]
     Indication: OSTEITIS
     Dosage: UNKNOWN
     Route: 042
     Dates: start: 20081017, end: 20081107
  2. HIBOR [Concomitant]
     Indication: OSTEITIS
     Dosage: UNKNOWN STARTING ON 18-OCT-2008
     Route: 058
  3. IBUPROFEN [Interacting]
     Indication: OSTEITIS
     Dosage: UNKNOWN
     Route: 048
     Dates: start: 20081017, end: 20081118
  4. PARACETAMOL [Concomitant]
     Indication: OSTEITIS
     Dosage: UNKNOWN, STARTING ON 17-OCT-2008
     Route: 048
  5. AMIKACIN [Interacting]
     Indication: OSTEITIS
     Dosage: UNKNOWN
     Route: 042
     Dates: start: 20081024, end: 20081107
  6. VANCOMYCIN [Interacting]
     Indication: OSTEITIS
     Dosage: UNKNOWN
     Route: 042
     Dates: start: 20081105, end: 20081108

REACTIONS (3)
  - DRUG INTERACTION [None]
  - HEPATITIS CHOLESTATIC [None]
  - RENAL FAILURE ACUTE [None]
